FAERS Safety Report 9122418 (Version 1)
Quarter: 2013Q1

REPORT INFORMATION
  Report Type: Spontaneous
  Country: US (occurrence: US)
  Receive Date: 20130227
  Receipt Date: 20130227
  Transmission Date: 20140127
  Serious: No
  Sender: FDA-Public Use
  Company Number: US-JNJFOC-20130208499

PATIENT
  Sex: Female

DRUGS (6)
  1. DURAGESIC [Suspect]
     Indication: PAIN
     Route: 062
  2. DURAGESIC [Suspect]
     Indication: PAIN
     Route: 062
  3. DURAGESIC [Suspect]
     Indication: PAIN
     Route: 062
  4. DURAGESIC [Suspect]
     Indication: PAIN
     Route: 062
     Dates: end: 2012
  5. DURAGESIC [Suspect]
     Indication: PAIN
     Route: 062
     Dates: start: 2012
  6. FENTANYL [Suspect]
     Indication: PAIN

REACTIONS (3)
  - Pain [Unknown]
  - Product quality issue [Unknown]
  - Wrong technique in drug usage process [Recovered/Resolved]
